FAERS Safety Report 5447749-X (Version None)
Quarter: 2007Q3

REPORT INFORMATION
  Report Type: 
  Country: None (occurrence: None)
  Receive Date: 20070910
  Receipt Date: 20060927
  Transmission Date: 20080115
  Serious: No
  Sender: FDA-Public Use
  Company Number: US-BRISTOL-MYERS SQUIBB COMPANY-13522990

PATIENT
  Sex: Female

DRUGS (1)
  1. MUCOMYST [Suspect]

REACTIONS (1)
  - ACCIDENTAL EXPOSURE [None]
